FAERS Safety Report 16904795 (Version 1)
Quarter: 2019Q4

REPORT INFORMATION
  Report Type: Spontaneous
  Country: GB (occurrence: GB)
  Receive Date: 20191010
  Receipt Date: 20191010
  Transmission Date: 20200122
  Serious: Yes (Other)
  Sender: FDA-Public Use
  Company Number: GB-MYLANLABS-2019M1094886

PATIENT
  Age: 29 Year
  Sex: Female
  Weight: 61.68 kg

DRUGS (1)
  1. VENLAFAXINE [Suspect]
     Active Substance: VENLAFAXINE HYDROCHLORIDE
     Indication: DEPRESSION SUICIDAL
     Dosage: UNK
     Route: 048

REACTIONS (4)
  - Dissociation [Recovered/Resolved]
  - Dizziness [Recovered/Resolved]
  - Tension headache [Recovered/Resolved]
  - Insomnia [Recovered/Resolved]
